FAERS Safety Report 10179377 (Version 1)
Quarter: 2014Q2

REPORT INFORMATION
  Report Type: Spontaneous
  Country: US (occurrence: US)
  Receive Date: 20140519
  Receipt Date: 20140519
  Transmission Date: 20141212
  Serious: Yes (Other)
  Sender: FDA-Public Use
  Company Number: US-BAYER-2014-072578

PATIENT
  Age: 45 Year
  Sex: Female

DRUGS (2)
  1. MAGNEVIST [Suspect]
     Indication: NECK PAIN
     Dosage: UNK UNK, ONCE
     Route: 042
     Dates: start: 20140514, end: 20140514
  2. MAGNEVIST [Suspect]
     Indication: NUCLEAR MAGNETIC RESONANCE IMAGING

REACTIONS (4)
  - Pharyngeal oedema [None]
  - Sputum retention [None]
  - Dysphagia [None]
  - Throat irritation [None]
